FAERS Safety Report 9405285 (Version 1)
Quarter: 2013Q3

REPORT INFORMATION
  Report Type: Spontaneous
  Country: US (occurrence: US)
  Receive Date: 20130717
  Receipt Date: 20130717
  Transmission Date: 20140515
  Serious: Yes (Other)
  Sender: FDA-Public Use
  Company Number: US-ROXANE LABORATORIES, INC.-2013-RO-01168RO

PATIENT
  Age: 69 Year
  Sex: Female

DRUGS (3)
  1. ROPINIROLE [Suspect]
     Indication: RESTLESS LEGS SYNDROME
     Dosage: 0.5 MG
  2. ROPINIROLE [Suspect]
  3. CLONAZEPAM [Suspect]
     Indication: PERIODIC LIMB MOVEMENT DISORDER

REACTIONS (7)
  - Drug withdrawal syndrome [Recovered/Resolved]
  - Agitation [Unknown]
  - Restlessness [Recovered/Resolved]
  - Middle insomnia [Recovered/Resolved]
  - Drug ineffective [Recovered/Resolved]
  - Impulse-control disorder [Recovered/Resolved]
  - Stereotypy [Recovered/Resolved]
